FAERS Safety Report 9506326 (Version 1)
Quarter: 2013Q1

REPORT INFORMATION
  Report Type: Spontaneous
  Country: US (occurrence: None)
  Receive Date: 20130301
  Receipt Date: 20130301
  Transmission Date: 20140127
  Serious: Yes (Other)
  Sender: FDA-Public Use
  Company Number: RB-46002-2012

PATIENT
  Age: 4 Month
  Sex: Female

DRUGS (5)
  1. SUBUTEX [Suspect]
     Indication: PRODUCT USED FOR UNKNOWN INDICATION
     Route: 064
  2. VICODIN [Suspect]
     Indication: PRODUCT USED FOR UNKNOWN INDICATION
     Dosage: DETAILS UNSPECIFIED
     Route: 064
  3. PERCOCET [Suspect]
     Indication: PRODUCT USED FOR UNKNOWN INDICATION
     Dosage: DETAILS UNSPECIFIED
     Route: 064
  4. HEROIN [Suspect]
     Indication: PRODUCT USED FOR UNKNOWN INDICATION
     Dosage: DOSE UNSPECIFIED
     Route: 064
  5. OPIOIDS [Suspect]
     Indication: PRODUCT USED FOR UNKNOWN INDICATION
     Dosage: DOES UNSPECIFIED
     Route: 064

REACTIONS (3)
  - Drug withdrawal syndrome neonatal [None]
  - Exposure during breast feeding [None]
  - Foetal exposure during pregnancy [None]
